FAERS Safety Report 23060505 (Version 2)
Quarter: 2023Q4

REPORT INFORMATION
  Report Type: Spontaneous
  Country: US (occurrence: US)
  Receive Date: 20231012
  Receipt Date: 20231221
  Transmission Date: 20240110
  Serious: No
  Sender: FDA-Public Use
  Company Number: US-ALXN-A202313206

PATIENT
  Sex: Female

DRUGS (1)
  1. SOLIRIS [Suspect]
     Active Substance: ECULIZUMAB
     Indication: Myasthenia gravis
     Dosage: 900 MG, UNK
     Route: 065

REACTIONS (2)
  - Nasopharyngitis [Recovered/Resolved]
  - Upper respiratory tract infection [Recovered/Resolved]
